FAERS Safety Report 7105761-9 (Version None)
Quarter: 2010Q4

REPORT INFORMATION
  Report Type: 
  Country: None (occurrence: None)
  Receive Date: 20101116
  Receipt Date: 20101104
  Transmission Date: 20110411
  Serious: Yes (Hospitalization, Other)
  Sender: FDA-Public Use
  Company Number: PHHY2010CA66553

PATIENT
  Sex: Male

DRUGS (1)
  1. SANDOSTATIN LAR [Suspect]
     Indication: SUBILEUS
     Dosage: 20 MG, QMO
     Route: 030
     Dates: start: 20100505

REACTIONS (5)
  - ASTHENIA [None]
  - PAIN [None]
  - PULMONARY OEDEMA [None]
  - THORACIC CAVITY DRAINAGE [None]
  - WEIGHT DECREASED [None]
